FAERS Safety Report 18019734 (Version 18)
Quarter: 2022Q4

REPORT INFORMATION
  Report Type: Report from Study
  Country: CO (occurrence: None)
  Receive Date: 20200714
  Receipt Date: 20221026
  Transmission Date: 20230112
  Serious: Yes (Life-Threatening, Hospitalization)
  Sender: FDA-Public Use
  Company Number: CO-EISAI MEDICAL RESEARCH-EC-2020-077341

PATIENT
  Age: 49 Year
  Sex: Female
  Weight: 71 kg

DRUGS (5)
  1. LENVATINIB [Suspect]
     Active Substance: LENVATINIB
     Indication: Non-small cell lung cancer metastatic
     Route: 048
     Dates: start: 20200630, end: 20200705
  2. LENVATINIB [Suspect]
     Active Substance: LENVATINIB
     Indication: Disease progression
     Route: 048
     Dates: start: 20200714, end: 20201122
  3. PEMBROLIZUMAB [Suspect]
     Active Substance: PEMBROLIZUMAB
     Indication: Non-small cell lung cancer metastatic
     Route: 041
     Dates: start: 20200630, end: 20200630
  4. PEMBROLIZUMAB [Suspect]
     Active Substance: PEMBROLIZUMAB
     Indication: Disease progression
     Route: 041
     Dates: start: 20200721, end: 20201103
  5. LEVOTHYROXINE SODIUM [Concomitant]
     Active Substance: LEVOTHYROXINE SODIUM
     Dates: start: 201505

REACTIONS (1)
  - Hypertension [Recovering/Resolving]

NARRATIVE: CASE EVENT DATE: 20200705
